FAERS Safety Report 5047764-4 (Version None)
Quarter: 2006Q3

REPORT INFORMATION
  Report Type: 
  Country: None (occurrence: None)
  Receive Date: 20060710
  Receipt Date: 20060710
  Transmission Date: 20061208
  Serious: Yes (Hospitalization)
  Sender: FDA-Public Use
  Company Number: None

PATIENT
  Age: 37 Year
  Sex: Male
  Weight: 118 kg

DRUGS (9)
  1. LISINOPRIL [Suspect]
     Indication: HYPERTENSION
     Dosage: 2.5 MG QDAY PO
     Route: 048
     Dates: start: 20060412, end: 20060501
  2. LISINOPRIL [Concomitant]
  3. METOPROLOL TARTRATE [Concomitant]
  4. SIMVASTATIN [Concomitant]
  5. CLOPIDOGREL BISULFATE [Concomitant]
  6. .... [Concomitant]
  7. PRECISION XTRA -GLUCOSE- TEST STRIP [Concomitant]
  8. SODIUM CHLORIDE 0.65% NASAL SOLN SPRAY [Concomitant]
  9. PRECISION XTRA METER [Concomitant]

REACTIONS (11)
  - ARTHRALGIA [None]
  - CORONARY ARTERY DISEASE [None]
  - DYSPNOEA [None]
  - ILL-DEFINED DISORDER [None]
  - MUSCULOSKELETAL PAIN [None]
  - NAUSEA [None]
  - RASH [None]
  - SWELLING [None]
  - URTICARIA [None]
  - URTICARIA GENERALISED [None]
  - WHEEZING [None]
